FAERS Safety Report 8004211-8 (Version None)
Quarter: 2011Q4

REPORT INFORMATION
  Report Type: 
  Country: None (occurrence: None)
  Receive Date: 20111223
  Receipt Date: 20111215
  Transmission Date: 20120403
  Serious: No
  Sender: FDA-Public Use
  Company Number: US-BIOGENIDEC-2011BI018552

PATIENT
  Sex: Female

DRUGS (4)
  1. AVONEX [Concomitant]
     Indication: MULTIPLE SCLEROSIS
     Route: 030
  2. COPAXONE [Concomitant]
     Indication: MULTIPLE SCLEROSIS
  3. TYSABRI [Suspect]
     Route: 042
     Dates: start: 20050425, end: 20060517
  4. TYSABRI [Suspect]
     Indication: MULTIPLE SCLEROSIS
     Route: 042
     Dates: start: 20070111

REACTIONS (6)
  - HAEMOCHROMATOSIS [None]
  - SERUM FERRITIN INCREASED [None]
  - CATARACT [None]
  - DEPRESSION [None]
  - VOLUME BLOOD INCREASED [None]
  - DIZZINESS POSTURAL [None]
